FAERS Safety Report 19500513 (Version 1)
Quarter: 2021Q3

REPORT INFORMATION
  Report Type: Spontaneous
  Country: CN (occurrence: CN)
  Receive Date: 20210706
  Receipt Date: 20210706
  Transmission Date: 20211014
  Serious: Yes (Hospitalization)
  Sender: FDA-Public Use
  Company Number: CN-ASTRAZENECA-2021A568830

PATIENT
  Age: 67 Year
  Sex: Male
  Weight: 80 kg

DRUGS (4)
  1. WEIMAINING [Concomitant]
     Indication: NEOPLASM
     Route: 048
     Dates: start: 202008
  2. IMFINZI [Suspect]
     Active Substance: DURVALUMAB
     Indication: NON-SMALL CELL LUNG CANCER STAGE III
     Dosage: 1000.0MG UNKNOWN
     Route: 042
     Dates: end: 20201108
  3. IMFINZI [Suspect]
     Active Substance: DURVALUMAB
     Indication: NON-SMALL CELL LUNG CANCER STAGE III
     Dosage: 1000.0MG UNKNOWN
     Route: 042
  4. IMFINZI [Suspect]
     Active Substance: DURVALUMAB
     Indication: NON-SMALL CELL LUNG CANCER STAGE III
     Dosage: 1000.0MG UNKNOWN
     Route: 042
     Dates: start: 20200726, end: 202101

REACTIONS (1)
  - Radiation pneumonitis [Recovering/Resolving]
